FAERS Safety Report 6429508-4 (Version None)
Quarter: 2009Q4

REPORT INFORMATION
  Report Type: 
  Country: None (occurrence: None)
  Receive Date: 20091105
  Receipt Date: 20090825
  Transmission Date: 20100525
  Serious: No
  Sender: FDA-Public Use
  Company Number: US-ABBOTT-09P-163-0587984-00

PATIENT
  Age: 37 Year
  Sex: Female

DRUGS (4)
  1. KALETRA [Suspect]
     Indication: HIV INFECTION
     Route: 048
     Dates: start: 20081218
  2. LAMIVUDINE + ZIDOVUDINE [Suspect]
     Indication: HIV INFECTION
  3. ZIDOVUDINE [Suspect]
     Indication: HIV INFECTION
     Route: 042
     Dates: start: 20090603, end: 20090603
  4. SUSTIVA [Suspect]
     Indication: DRUG USE FOR UNKNOWN INDICATION
     Dates: end: 20081022

REACTIONS (2)
  - DYSLIPIDAEMIA [None]
  - GESTATIONAL DIABETES [None]
